FAERS Safety Report 7782571-0 (Version None)
Quarter: 2011Q3

REPORT INFORMATION
  Report Type: 
  Country: None (occurrence: None)
  Receive Date: 20110923
  Receipt Date: 20110913
  Transmission Date: 20111222
  Serious: Yes (Hospitalization, Other)
  Sender: FDA-Public Use
  Company Number: 2011SP001281

PATIENT
  Age: 43 Year
  Sex: Female
  Weight: 88.4514 kg

DRUGS (9)
  1. NUVARING [Suspect]
     Indication: CONTRACEPTION
     Dosage: VAG
     Route: 067
     Dates: start: 20080724, end: 20080905
  2. NUVARING [Suspect]
     Indication: MENSTRUAL CYCLE MANAGEMENT
     Dosage: VAG
     Route: 067
     Dates: start: 20080724, end: 20080905
  3. PROPRANOLOL [Concomitant]
  4. ZYPREXA [Concomitant]
  5. DIAZEPAM [Concomitant]
  6. LEVOTHYROXINE [Concomitant]
  7. SEROQUEL [Concomitant]
  8. MIRTAZAPINE [Concomitant]
  9. LYRICA [Concomitant]

REACTIONS (8)
  - PLANTAR FASCIITIS [None]
  - MENTAL DISORDER [None]
  - ANXIETY [None]
  - HYPERCOAGULATION [None]
  - OEDEMA PERIPHERAL [None]
  - ASTHMA [None]
  - PULMONARY EMBOLISM [None]
  - PNEUMONIA [None]
